FAERS Safety Report 15053177 (Version 8)
Quarter: 2019Q1

REPORT INFORMATION
  Report Type: Report from Study
  Country: US (occurrence: US)
  Receive Date: 20180622
  Receipt Date: 20190314
  Transmission Date: 20190417
  Serious: Yes (Hospitalization)
  Sender: FDA-Public Use
  Company Number: US-ACTELION-A-NJ2017-155211

PATIENT
  Age: 67 Year
  Sex: Female
  Weight: 62.13 kg

DRUGS (4)
  1. VELETRI [Suspect]
     Active Substance: EPOPROSTENOL
     Dosage: UNK
     Route: 042
  2. SILDENAFIL. [Concomitant]
     Active Substance: SILDENAFIL
     Indication: PULMONARY ARTERIAL HYPERTENSION
  3. VELETRI [Suspect]
     Active Substance: EPOPROSTENOL
     Dosage: 18 NG/KG, PER MIN
     Route: 042
  4. VELETRI [Suspect]
     Active Substance: EPOPROSTENOL
     Indication: PULMONARY ARTERIAL HYPERTENSION
     Dosage: 18 NG/KG, PER MIN
     Route: 042

REACTIONS (13)
  - Rash macular [Unknown]
  - Gastrointestinal disorder [Unknown]
  - Rash erythematous [Unknown]
  - Device dislocation [Unknown]
  - Fall [Unknown]
  - Arthralgia [Unknown]
  - Rash generalised [Unknown]
  - Cheilitis [Unknown]
  - Musculoskeletal pain [Unknown]
  - Hospitalisation [Unknown]
  - Ligament sprain [Unknown]
  - Dyspnoea exertional [Unknown]
  - Diarrhoea [Unknown]

NARRATIVE: CASE EVENT DATE: 201706
